FAERS Safety Report 18481892 (Version 4)
Quarter: 2021Q4

REPORT INFORMATION
  Report Type: Spontaneous
  Country: PR (occurrence: PR)
  Receive Date: 20201109
  Receipt Date: 20211228
  Transmission Date: 20220303
  Serious: Yes (Other)
  Sender: FDA-Public Use
  Company Number: PR-MALLINCKRODT-T202004740

PATIENT
  Sex: Female
  Weight: 88 kg

DRUGS (5)
  1. H.P. ACTHAR [Suspect]
     Active Substance: CORTICOTROPIN
     Indication: Vernal keratoconjunctivitis
     Dosage: 60 UNITS EVERY 72 HOURS
     Route: 058
     Dates: start: 20200213, end: 202011
  2. H.P. ACTHAR [Suspect]
     Active Substance: CORTICOTROPIN
     Dosage: 60 UNITS EVERY 72 HOURS
     Route: 065
     Dates: start: 202011, end: 202011
  3. H.P. ACTHAR [Suspect]
     Active Substance: CORTICOTROPIN
     Dosage: 80 UNITS EVERY THREE DAYS
     Route: 065
     Dates: start: 2020
  4. H.P. ACTHAR [Suspect]
     Active Substance: CORTICOTROPIN
     Dosage: 80 UNITS EVERY 72 HOURS
     Route: 065
     Dates: end: 202102
  5. PREDNISONE [Concomitant]
     Active Substance: PREDNISONE
     Indication: Product used for unknown indication
     Dosage: UNK
     Route: 065

REACTIONS (6)
  - Vernal keratoconjunctivitis [Not Recovered/Not Resolved]
  - Condition aggravated [Not Recovered/Not Resolved]
  - Eye inflammation [Recovered/Resolved]
  - Eye pruritus [Recovered/Resolved]
  - Inappropriate schedule of product administration [Recovered/Resolved]
  - Product dose omission issue [Not Recovered/Not Resolved]

NARRATIVE: CASE EVENT DATE: 20200101
